FAERS Safety Report 4925689-X (Version None)
Quarter: 2006Q1

REPORT INFORMATION
  Report Type: 
  Country: None (occurrence: None)
  Receive Date: 20060228
  Receipt Date: 20050124
  Transmission Date: 20060701
  Serious: Yes (Other)
  Sender: FDA-Public Use
  Company Number: US-GLAXOSMITHKLINE-A0541979A

PATIENT
  Age: 34 Year
  Sex: Male

DRUGS (6)
  1. LAMICTAL [Suspect]
     Indication: BIPOLAR DISORDER
     Route: 048
     Dates: start: 20041001
  2. GEODON [Concomitant]
  3. CYMBALTA [Concomitant]
  4. CLONAZEPAM [Concomitant]
  5. DIAZEPAM [Concomitant]
  6. TEMAZEPAM [Concomitant]

REACTIONS (3)
  - DRUG INEFFECTIVE [None]
  - HYPOMANIA [None]
  - MANIA [None]
